FAERS Safety Report 23499679 (Version 1)
Quarter: 2024Q1

REPORT INFORMATION
  Report Type: Spontaneous
  Country: EU (occurrence: None)
  Receive Date: 20240208
  Receipt Date: 20240208
  Transmission Date: 20240410
  Serious: Yes (Other)
  Sender: FDA-Public Use
  Company Number: None

PATIENT

DRUGS (3)
  1. BUPRENORPHINE HYDROCHLORIDE [Suspect]
     Active Substance: BUPRENORPHINE HYDROCHLORIDE
     Indication: Product used for unknown indication
     Dosage: ? DE COMPRIM? (POSOLOGIE INCONNUE)
     Route: 048
     Dates: start: 20231003, end: 20231003
  2. CANNABIS SATIVA SUBSP. INDICA TOP [Suspect]
     Active Substance: CANNABIS SATIVA SUBSP. INDICA TOP
     Dosage: 4 JOINTS/JOUR
     Route: 055
     Dates: start: 20231003, end: 20231003
  3. ALCOHOL [Suspect]
     Active Substance: ALCOHOL
     Route: 048
     Dates: start: 20231003, end: 20231003

REACTIONS (1)
  - Behaviour disorder [Recovered/Resolved]

NARRATIVE: CASE EVENT DATE: 20231003
